FAERS Safety Report 12802855 (Version 1)
Quarter: 2016Q4

REPORT INFORMATION
  Report Type: Spontaneous
  Country: FR (occurrence: FR)
  Receive Date: 20161003
  Receipt Date: 20161003
  Transmission Date: 20170207
  Serious: Yes (Other)
  Sender: FDA-Public Use
  Company Number: FR-GLAXOSMITHKLINE-FR2016GSK143710

PATIENT
  Age: 59 Year
  Sex: Female

DRUGS (8)
  1. COVERSYL [Concomitant]
     Active Substance: PERINDOPRIL
     Dosage: 5 MG, UNK
  2. CARDEGIC [Concomitant]
     Active Substance: ASPIRIN LYSINE
  3. LASILIX [Concomitant]
     Active Substance: FUROSEMIDE
  4. COVERAM [Concomitant]
     Active Substance: AMLODIPINE\PERINDOPRIL
  5. INEGY [Concomitant]
     Active Substance: EZETIMIBE\SIMVASTATIN
  6. CARDENSIEL [Concomitant]
     Active Substance: BISOPROLOL FUMARATE
  7. NICOTINE POLACRILEX [Suspect]
     Active Substance: NICOTINE
     Indication: SMOKING CESSATION THERAPY
     Dosage: UNK
  8. NATISPRAY [Concomitant]
     Active Substance: NITROGLYCERIN

REACTIONS (3)
  - Angina pectoris [Not Recovered/Not Resolved]
  - Drug dependence [Not Recovered/Not Resolved]
  - Incorrect drug administration duration [Not Recovered/Not Resolved]

NARRATIVE: CASE EVENT DATE: 201608
